FAERS Safety Report 21949874 (Version 3)
Quarter: 2023Q2

REPORT INFORMATION
  Report Type: Spontaneous
  Country: US (occurrence: US)
  Receive Date: 20230203
  Receipt Date: 20230503
  Transmission Date: 20230721
  Serious: Yes (Other)
  Sender: FDA-Public Use
  Company Number: US-BRISTOL-MYERS SQUIBB COMPANY-2023-015024

PATIENT
  Age: 78 Year
  Sex: Female

DRUGS (1)
  1. LENALIDOMIDE [Suspect]
     Active Substance: LENALIDOMIDE
     Indication: Plasma cell myeloma
     Dosage: TAKE 1 CAPSULE BY MOUTH EVERY DAY ON DAYS 1-21, HOLD 7 DAYS, REPEAT
     Route: 048

REACTIONS (8)
  - Dyspnoea [Not Recovered/Not Resolved]
  - Chest pain [Recovering/Resolving]
  - Pain in extremity [Not Recovered/Not Resolved]
  - Wheezing [Not Recovered/Not Resolved]
  - Malaise [Unknown]
  - Swelling [Unknown]
  - Sinus disorder [Recovering/Resolving]
  - Viral infection [Recovering/Resolving]
